FAERS Safety Report 10074962 (Version 1)
Quarter: 2014Q2

REPORT INFORMATION
  Report Type: Spontaneous
  Country: US (occurrence: US)
  Receive Date: 20140414
  Receipt Date: 20140414
  Transmission Date: 20141212
  Serious: No
  Sender: FDA-Public Use
  Company Number: US-BIOGENIDEC-2014BI027870

PATIENT
  Sex: Male

DRUGS (2)
  1. TECFIDERA [Suspect]
     Indication: MULTIPLE SCLEROSIS
  2. TECFIDERA [Suspect]
     Indication: MULTIPLE SCLEROSIS
     Dates: start: 20131230

REACTIONS (11)
  - Drug intolerance [Not Recovered/Not Resolved]
  - Somnolence [Not Recovered/Not Resolved]
  - Fatigue [Unknown]
  - Dysstasia [Unknown]
  - Depressed mood [Not Recovered/Not Resolved]
  - Feeling of despair [Unknown]
  - Hemiparesis [Unknown]
  - Pain [Unknown]
  - Paraesthesia [Unknown]
  - Joint hyperextension [Unknown]
  - General symptom [Unknown]
